FAERS Safety Report 9303118 (Version 1)
Quarter: 2013Q2

REPORT INFORMATION
  Report Type: Spontaneous
  Country: JP (occurrence: JP)
  Receive Date: 20130522
  Receipt Date: 20130522
  Transmission Date: 20140414
  Serious: Yes (Death, Other)
  Sender: FDA-Public Use
  Company Number: PHHY2013JP050659

PATIENT
  Age: 59 Year
  Sex: Male

DRUGS (1)
  1. ZOLEDRONIC ACID [Suspect]
     Indication: BONE CANCER METASTATIC
     Dosage: 4 MG, PER MONTH
     Dates: start: 200609, end: 200902

REACTIONS (9)
  - Death [Fatal]
  - Paralysis [Unknown]
  - Pneumonia [Unknown]
  - Osteonecrosis of jaw [Unknown]
  - Pain [Unknown]
  - Dysaesthesia [Unknown]
  - Bladder disorder [Unknown]
  - Anorectal disorder [Unknown]
  - Ulcer [Unknown]
